FAERS Safety Report 4977293-5 (Version None)
Quarter: 2006Q2

REPORT INFORMATION
  Report Type: 
  Country: None (occurrence: None)
  Receive Date: 20060419
  Receipt Date: 20060403
  Transmission Date: 20061013
  Serious: Yes (Hospitalization, Disabling, Other)
  Sender: FDA-Public Use
  Company Number: US-MERCK-0604USA00314

PATIENT
  Age: 51 Year
  Sex: Male
  Weight: 116 kg

DRUGS (11)
  1. TOPROL-XL [Concomitant]
     Route: 065
  2. GLUCOPHAGE [Concomitant]
     Route: 065
  3. WARFARIN [Concomitant]
     Route: 065
  4. HYDREX (HYDROCHLOROTHIAZIDE) [Concomitant]
     Route: 065
  5. DARVOCET [Concomitant]
     Route: 065
  6. QUINE [Concomitant]
     Route: 065
  7. ASPIRIN [Concomitant]
     Route: 065
  8. ZANTAC [Concomitant]
     Route: 065
  9. VIOXX [Suspect]
     Indication: ARTHRALGIA
     Route: 048
     Dates: start: 20020101, end: 20040901
  10. VIOXX [Suspect]
     Route: 048
     Dates: start: 20020701, end: 20031101
  11. VIOXX [Suspect]
     Route: 048
     Dates: start: 20031101

REACTIONS (42)
  - ABDOMINAL PAIN UPPER [None]
  - AGITATION [None]
  - BLOOD GLUCOSE INCREASED [None]
  - CEREBROVASCULAR ACCIDENT [None]
  - CHEST PAIN [None]
  - CONVULSION [None]
  - COORDINATION ABNORMAL [None]
  - DEEP VEIN THROMBOSIS [None]
  - DIABETES MELLITUS MALNUTRITION-RELATED [None]
  - DIABETES MELLITUS NON-INSULIN-DEPENDENT [None]
  - DIZZINESS [None]
  - DYSARTHRIA [None]
  - DYSPNOEA [None]
  - ELECTROCARDIOGRAM CHANGE [None]
  - ELECTROCARDIOGRAM T WAVE AMPLITUDE DECREASED [None]
  - ERYTHEMA [None]
  - FALL [None]
  - FATIGUE [None]
  - HEART RATE INCREASED [None]
  - HYPERSOMNIA [None]
  - HYPERTENSION [None]
  - HYPOGLYCAEMIA [None]
  - HYPOTENSION [None]
  - INGUINAL HERNIA [None]
  - INJURY [None]
  - INTERNATIONAL NORMALISED RATIO DECREASED [None]
  - MUSCLE SPASMS [None]
  - PAIN IN EXTREMITY [None]
  - PANIC ATTACK [None]
  - POLYURIA [None]
  - PULMONARY EMBOLISM [None]
  - PULMONARY HYPERTENSION [None]
  - ROAD TRAFFIC ACCIDENT [None]
  - SINUSITIS [None]
  - SOMNOLENCE [None]
  - SWELLING [None]
  - THROMBOPHLEBITIS [None]
  - THROMBOSIS [None]
  - TRANSIENT ISCHAEMIC ATTACK [None]
  - TREMOR [None]
  - VERTIGO [None]
  - VISION BLURRED [None]
